FAERS Safety Report 7255353-6 (Version None)
Quarter: 2011Q1

REPORT INFORMATION
  Report Type: 
  Country: None (occurrence: None)
  Receive Date: 20110129
  Receipt Date: 20100324
  Transmission Date: 20110831
  Serious: No
  Sender: FDA-Public Use
  Company Number: US-ABBOTT-10P-163-0634529-00

PATIENT
  Sex: Female
  Weight: 82.628 kg

DRUGS (5)
  1. METOPROLOL [Concomitant]
     Indication: PRODUCT USED FOR UNKNOWN INDICATION
  2. LISINOPRIL [Concomitant]
     Indication: PRODUCT USED FOR UNKNOWN INDICATION
  3. IBUPROFEN [Concomitant]
     Indication: PRODUCT USED FOR UNKNOWN INDICATION
  4. HUMIRA [Suspect]
     Dates: start: 20091101
  5. HUMIRA [Suspect]
     Indication: JUVENILE ARTHRITIS
     Route: 058
     Dates: start: 20080101, end: 20091101

REACTIONS (7)
  - RHEUMATOID ARTHRITIS [None]
  - TINEA PEDIS [None]
  - RESPIRATORY TRACT CONGESTION [None]
  - ASTHENIA [None]
  - COUGH [None]
  - PAIN [None]
  - BODY TEMPERATURE FLUCTUATION [None]
